FAERS Safety Report 7301263-5 (Version None)
Quarter: 2011Q1

REPORT INFORMATION
  Report Type: 
  Country: None (occurrence: None)
  Receive Date: 20110112
  Receipt Date: 20090323
  Transmission Date: 20110831
  Serious: Yes (Hospitalization)
  Sender: FDA-Public Use
  Company Number: THYM-1000977

PATIENT
  Age: 51 Year
  Sex: Male

DRUGS (5)
  1. METHYLPREDNISOLONE [Concomitant]
  2. THYMOGLOBULIN [Suspect]
     Indication: RENAL TRANSPLANT
     Dosage: 100 MG, INTRAVENOUS, 200 MG, INTRAVENOUS
     Route: 042
  3. MYCOPHENOLIC ACID [Concomitant]
  4. PREDNISOLONE ACETATE [Concomitant]
  5. TACROLIMUS [Concomitant]

REACTIONS (1)
  - SERUM SICKNESS [None]
